FAERS Safety Report 4326236-6 (Version None)
Quarter: 2004Q1

REPORT INFORMATION
  Report Type: 
  Country: None (occurrence: None)
  Receive Date: 20040324
  Receipt Date: 20040130
  Transmission Date: 20041129
  Serious: Yes (Hospitalization)
  Sender: FDA-Public Use
  Company Number: FR 2004 0008

PATIENT
  Age: 59 Year
  Sex: Female

DRUGS (1)
  1. DOTAREM (MEGLUMINE GADOTERATE) [Suspect]
     Indication: NUCLEAR MAGNETIC RESONANCE IMAGING BRAIN

REACTIONS (4)
  - COMA [None]
  - FEELING ABNORMAL [None]
  - INFUSION SITE REACTION [None]
  - PULMONARY OEDEMA [None]
